FAERS Safety Report 5977263-4 (Version None)
Quarter: 2008Q4

REPORT INFORMATION
  Report Type: 
  Country: None (occurrence: None)
  Receive Date: 20081203
  Receipt Date: 20081128
  Transmission Date: 20090506
  Serious: Yes (Other)
  Sender: FDA-Public Use
  Company Number: ES-ABBOTT-08P-144-0490065-00

PATIENT
  Age: 54 Year
  Sex: Male

DRUGS (2)
  1. KALETRA [Suspect]
     Indication: HIV INFECTION
     Route: 048
     Dates: start: 20010921
  2. LAMIVUDINE + ZIDOVUDINE [Interacting]
     Indication: HIV INFECTION
     Dosage: 150/'300 MG; 1 TABLET EVERY 12 HOURS
     Route: 048
     Dates: start: 20010921, end: 20080521

REACTIONS (3)
  - ABNORMAL LOSS OF WEIGHT [None]
  - DRUG INTERACTION [None]
  - LIPODYSTROPHY ACQUIRED [None]
